FAERS Safety Report 18516942 (Version 1)
Quarter: 2020Q4

REPORT INFORMATION
  Report Type: Report from Study
  Country: CA (occurrence: CA)
  Receive Date: 20201118
  Receipt Date: 20201118
  Transmission Date: 20210114
  Serious: Yes (Hospitalization, Other)
  Sender: FDA-Public Use
  Company Number: CA-JNJFOC-20201119538

PATIENT
  Age: 74 Year
  Sex: Male

DRUGS (1)
  1. REMICADE [Suspect]
     Active Substance: INFLIXIMAB
     Indication: CROHN^S DISEASE
     Dosage: ON 01-OCT-2020 AND 13-OCT-2020, THE PATIENT RECEIVED 2 INFUSIONS
     Route: 042
     Dates: start: 20201001, end: 2020

REACTIONS (4)
  - Intestinal metastasis [Unknown]
  - Hospitalisation [Unknown]
  - Colon cancer metastatic [Unknown]
  - Metastases to liver [Unknown]

NARRATIVE: CASE EVENT DATE: 2020
